FAERS Safety Report 12445448 (Version 1)
Quarter: 2016Q2

REPORT INFORMATION
  Report Type: Spontaneous
  Country: US (occurrence: US)
  Receive Date: 20160608
  Receipt Date: 20160608
  Transmission Date: 20160815
  Serious: Yes (Other)
  Sender: FDA-Public Use
  Company Number: US-JNJFOC-20160415576

PATIENT
  Age: 13 Year
  Sex: Female
  Weight: 53.25 kg

DRUGS (69)
  1. RISPERDAL [Suspect]
     Active Substance: RISPERIDONE
     Indication: MENTAL DISORDER
     Route: 048
     Dates: start: 20160114, end: 20160216
  2. INOTUZUMAB OZOGAMICIN [Suspect]
     Active Substance: INOTUZUMAB OZOGAMICIN
     Indication: PRODUCT USED FOR UNKNOWN INDICATION
     Dosage: DOSE: 1.3 MG MAX
     Route: 042
     Dates: start: 20151130, end: 20160202
  3. BENADRYL [Concomitant]
     Active Substance: DIPHENHYDRAMINE HYDROCHLORIDE
     Indication: PREMEDICATION
     Route: 042
     Dates: start: 20160229, end: 20160229
  4. DIFLUCAN [Concomitant]
     Active Substance: FLUCONAZOLE
     Indication: ANTIFUNGAL PROPHYLAXIS
     Route: 048
     Dates: start: 20151201, end: 20151208
  5. RISPERDAL [Suspect]
     Active Substance: RISPERIDONE
     Indication: ANXIETY
     Dosage: IN THE EVENING
     Route: 048
     Dates: start: 20160216
  6. RISPERDAL [Suspect]
     Active Substance: RISPERIDONE
     Indication: ANXIETY
     Route: 048
     Dates: start: 20160112, end: 20160114
  7. RISPERDAL [Suspect]
     Active Substance: RISPERIDONE
     Indication: MENTAL DISORDER
     Dosage: IN THE EVENING
     Route: 048
     Dates: start: 20160216
  8. BENADRYL [Concomitant]
     Active Substance: DIPHENHYDRAMINE HYDROCHLORIDE
     Indication: PREMEDICATION
     Route: 048
     Dates: start: 20160301, end: 20160303
  9. TOPAMAX [Concomitant]
     Active Substance: TOPIRAMATE
     Indication: MENTAL DISORDER
     Route: 048
     Dates: start: 20160209
  10. QVAR [Concomitant]
     Active Substance: BECLOMETHASONE DIPROPIONATE
     Indication: RESPIRATORY DISORDER
     Dosage: 6 PUFFS 4 TIMES A DAY
     Route: 055
     Dates: start: 20160229
  11. FENTANYL. [Concomitant]
     Active Substance: FENTANYL
     Indication: SEDATION
     Route: 042
     Dates: start: 20160225, end: 20160226
  12. KYTRIL [Concomitant]
     Active Substance: GRANISETRON HYDROCHLORIDE
     Indication: ANTIEMETIC SUPPORTIVE CARE
     Route: 048
     Dates: start: 20151208, end: 20160209
  13. NYSTATIN. [Concomitant]
     Active Substance: NYSTATIN
     Indication: ANTIFUNGAL PROPHYLAXIS
     Route: 048
     Dates: start: 20160222
  14. RISPERDAL [Suspect]
     Active Substance: RISPERIDONE
     Indication: MENTAL DISORDER
     Route: 048
     Dates: start: 20160226
  15. DIFLUCAN [Concomitant]
     Active Substance: FLUCONAZOLE
     Indication: ANTIFUNGAL PROPHYLAXIS
     Route: 048
     Dates: start: 20151208, end: 20160209
  16. ABELCET [Concomitant]
     Active Substance: AMPHOTERICIN B\DIMYRISTOYLPHOSPHATIDYLCHOLINE, DL-\DIMYRISTOYLPHOSPHATIDYLGLYCEROL, DL-
     Indication: ANTIFUNGAL PROPHYLAXIS
     Route: 065
     Dates: start: 20160302, end: 20160303
  17. VITAMIN D3 [Concomitant]
     Active Substance: CHOLECALCIFEROL
     Indication: VITAMIN SUPPLEMENTATION
     Route: 048
     Dates: start: 20151201
  18. MYCELEX [Concomitant]
     Active Substance: CLOTRIMAZOLE
     Indication: ANTIFUNGAL PROPHYLAXIS
     Route: 048
     Dates: start: 20160222
  19. ZOLOFT [Concomitant]
     Active Substance: SERTRALINE HYDROCHLORIDE
     Indication: MENTAL DISORDER
     Route: 048
     Dates: start: 20160105, end: 20160209
  20. RISPERDAL [Suspect]
     Active Substance: RISPERIDONE
     Indication: AGITATION
     Route: 048
     Dates: start: 20160226
  21. RISPERDAL [Suspect]
     Active Substance: RISPERIDONE
     Indication: AGITATION
     Dosage: IN THE EVENING
     Route: 048
     Dates: start: 20160216
  22. RISPERDAL [Suspect]
     Active Substance: RISPERIDONE
     Indication: ANXIETY
     Route: 048
     Dates: start: 20160114, end: 20160216
  23. ATIVAN [Concomitant]
     Active Substance: LORAZEPAM
     Indication: PREMEDICATION
     Route: 042
     Dates: start: 20160222, end: 20160222
  24. FENTANYL. [Concomitant]
     Active Substance: FENTANYL
     Indication: SEDATION
     Route: 042
     Dates: start: 20160224, end: 20160224
  25. FENTANYL. [Concomitant]
     Active Substance: FENTANYL
     Indication: SEDATION
     Route: 042
     Dates: start: 20160223, end: 20160223
  26. IMMUNE GLOBULIN [Concomitant]
     Active Substance: HUMAN IMMUNOGLOBULIN G
     Dosage: ONCE EVERY 2 WEEKS, AS NEEDED WHEN IGG LEVEL IS {400 MG/DL
     Route: 042
     Dates: start: 20160227, end: 20160227
  27. OSMITROL [Concomitant]
     Active Substance: MANNITOL
     Indication: DIURETIC THERAPY
     Route: 042
     Dates: start: 20160229, end: 20160229
  28. PEPCID [Concomitant]
     Active Substance: FAMOTIDINE
     Indication: PROPHYLAXIS
     Route: 048
     Dates: start: 20160222
  29. VERSED [Concomitant]
     Active Substance: MIDAZOLAM HYDROCHLORIDE
     Indication: SEDATION
     Route: 042
     Dates: start: 20160222, end: 20160226
  30. ZOFRAN [Concomitant]
     Active Substance: ONDANSETRON HYDROCHLORIDE
     Indication: ANTIEMETIC SUPPORTIVE CARE
     Dosage: EVERY 8 HOURS PRN
     Route: 042
  31. CELLCEPT [Concomitant]
     Active Substance: MYCOPHENOLATE MOFETIL\MYCOPHENOLATE MOFETIL HYDROCHLORIDE
     Indication: IMMUNOSUPPRESSION
     Route: 042
     Dates: start: 20160305
  32. RISPERDAL [Suspect]
     Active Substance: RISPERIDONE
     Indication: AGITATION
     Route: 048
     Dates: start: 20160112, end: 20160114
  33. DESYREL [Suspect]
     Active Substance: TRAZODONE HYDROCHLORIDE
     Indication: MENTAL DISORDER
     Dosage: IN THE EVENING
     Route: 048
     Dates: start: 20151027, end: 20160112
  34. CYTOXAN [Suspect]
     Active Substance: CYCLOPHOSPHAMIDE
     Indication: IMMUNOSUPPRESSION
     Route: 042
     Dates: start: 20160223, end: 20160224
  35. CYTOXAN [Suspect]
     Active Substance: CYCLOPHOSPHAMIDE
     Indication: CHEMOTHERAPY
     Route: 042
     Dates: start: 20160303, end: 20160304
  36. CYTOXAN [Suspect]
     Active Substance: CYCLOPHOSPHAMIDE
     Indication: CHEMOTHERAPY
     Route: 042
     Dates: start: 20160223, end: 20160224
  37. LEXAPRO [Concomitant]
     Active Substance: ESCITALOPRAM OXALATE
     Indication: MENTAL DISORDER
     Dosage: ONCE IN THE EVENING.
     Route: 048
     Dates: start: 20150927, end: 20160105
  38. PROPOFOL. [Concomitant]
     Active Substance: PROPOFOL
     Indication: SEDATION
     Dosage: 480 ML/HOUR
     Route: 042
     Dates: start: 20160222, end: 20160226
  39. CYTOXAN [Suspect]
     Active Substance: CYCLOPHOSPHAMIDE
     Indication: IMMUNOSUPPRESSION
     Route: 042
     Dates: start: 20160303, end: 20160304
  40. LEXAPRO [Concomitant]
     Active Substance: ESCITALOPRAM OXALATE
     Indication: MENTAL DISORDER
     Route: 048
     Dates: start: 20160226
  41. LEXAPRO [Concomitant]
     Active Substance: ESCITALOPRAM OXALATE
     Indication: DEPRESSION
     Dosage: ONCE IN THE EVENING.
     Route: 048
     Dates: start: 20150927, end: 20160105
  42. HEPARIN [Concomitant]
     Active Substance: HEPARIN SODIUM
     Indication: CARDIOVASCULAR EVENT PROPHYLAXIS
     Dosage: 4.2 UNITS/KG/HOUR, CONTINUOUS
     Route: 042
     Dates: start: 20160222
  43. LASIX [Concomitant]
     Active Substance: FUROSEMIDE
     Indication: DIURETIC THERAPY
     Dosage: EVERY 8 HOURS, AS NEEDED, WHEN FLUID OVERLOAD
     Route: 042
     Dates: start: 20160222
  44. PEPCID [Concomitant]
     Active Substance: FAMOTIDINE
     Indication: PROPHYLAXIS
     Route: 042
     Dates: start: 20160222
  45. TYLENOL [Concomitant]
     Active Substance: ACETAMINOPHEN
     Indication: PREMEDICATION
     Dosage: PRN ONCE EVERY 4 HOURS
     Route: 048
     Dates: start: 20160220
  46. VANCOCIN [Concomitant]
     Active Substance: VANCOMYCIN HYDROCHLORIDE
     Indication: ANTIBIOTIC THERAPY
     Route: 042
     Dates: start: 20160303, end: 20160304
  47. RISPERDAL [Suspect]
     Active Substance: RISPERIDONE
     Indication: ANXIETY
     Route: 048
     Dates: start: 20160226
  48. RISPERDAL [Suspect]
     Active Substance: RISPERIDONE
     Indication: MENTAL DISORDER
     Route: 048
     Dates: start: 20160112, end: 20160114
  49. DIFLUCAN [Concomitant]
     Active Substance: FLUCONAZOLE
     Indication: ANTIBIOTIC PROPHYLAXIS
     Route: 048
     Dates: start: 20151208, end: 20160209
  50. TOPAMAX [Concomitant]
     Active Substance: TOPIRAMATE
     Indication: MENTAL DISORDER
     Dosage: IN THE EVENING
     Route: 048
     Dates: start: 20151027, end: 20160128
  51. BACTRIM [Concomitant]
     Active Substance: SULFAMETHOXAZOLE\TRIMETHOPRIM
     Indication: ANTIFUNGAL PROPHYLAXIS
     Dosage: 400/80 MG; BID, SATURDAYS AND SUNDAYS
     Route: 048
     Dates: start: 20151208, end: 20160226
  52. LEXAPRO [Concomitant]
     Active Substance: ESCITALOPRAM OXALATE
     Indication: DEPRESSION
     Route: 048
     Dates: start: 20160204, end: 20160226
  53. XOPENEX [Concomitant]
     Active Substance: LEVALBUTEROL HYDROCHLORIDE
     Indication: RESPIRATORY DISORDER
     Route: 055
     Dates: start: 20160209, end: 20160305
  54. MERREM [Concomitant]
     Active Substance: MEROPENEM
     Indication: ANTIBIOTIC THERAPY
     Route: 042
     Dates: start: 20160301, end: 20160304
  55. MESNEX [Concomitant]
     Active Substance: MESNA
     Indication: PROPHYLAXIS
     Route: 042
     Dates: start: 20160303, end: 20160305
  56. PROVERA [Concomitant]
     Active Substance: MEDROXYPROGESTERONE ACETATE
     Indication: MENSTRUAL DISORDER
     Route: 048
     Dates: start: 20160222, end: 20160222
  57. PROGRAF [Concomitant]
     Active Substance: TACROLIMUS\TACROLIMUS ANHYDROUS
     Indication: IMMUNOSUPPRESSION
     Route: 042
     Dates: start: 20160305
  58. RISPERDAL [Suspect]
     Active Substance: RISPERIDONE
     Indication: AGITATION
     Route: 048
     Dates: start: 20160114, end: 20160216
  59. DESYREL [Suspect]
     Active Substance: TRAZODONE HYDROCHLORIDE
     Indication: MENTAL DISORDER
     Dosage: IN THE EVENING
     Route: 048
     Dates: start: 20160112
  60. FLUDARA [Suspect]
     Active Substance: FLUDARABINE PHOSPHATE
     Indication: CHEMOTHERAPY
     Route: 042
     Dates: start: 20160223, end: 20160227
  61. DIFLUCAN [Concomitant]
     Active Substance: FLUCONAZOLE
     Indication: ANTIBIOTIC PROPHYLAXIS
     Route: 048
     Dates: start: 20151201, end: 20151208
  62. ACTIGALL [Concomitant]
     Active Substance: URSODIOL
     Indication: CARDIOVASCULAR EVENT PROPHYLAXIS
     Route: 048
     Dates: start: 20160222
  63. ALBUTEROL. [Concomitant]
     Active Substance: ALBUTEROL
     Indication: RESPIRATORY DISORDER
     Route: 065
     Dates: start: 20160205, end: 20160209
  64. LEXAPRO [Concomitant]
     Active Substance: ESCITALOPRAM OXALATE
     Indication: MENTAL DISORDER
     Route: 048
     Dates: start: 20160204, end: 20160226
  65. LEXAPRO [Concomitant]
     Active Substance: ESCITALOPRAM OXALATE
     Indication: DEPRESSION
     Route: 048
     Dates: start: 20160226
  66. MYCAMINE [Concomitant]
     Active Substance: MICAFUNGIN SODIUM
     Indication: ANTIFUNGAL PROPHYLAXIS
     Route: 042
     Dates: start: 20160303
  67. SOLU-CORTEF [Concomitant]
     Active Substance: HYDROCORTISONE SODIUM SUCCINATE
     Indication: PREMEDICATION
     Dosage: ONCE EVERY 2 WEEKS PRN
     Route: 042
     Dates: start: 20160227, end: 20160227
  68. LEVAQUIN [Concomitant]
     Active Substance: LEVOFLOXACIN
     Indication: ANTIBIOTIC THERAPY
     Route: 048
     Dates: start: 20160209, end: 20160220
  69. VANCOCIN [Concomitant]
     Active Substance: VANCOMYCIN HYDROCHLORIDE
     Indication: ANTIBIOTIC THERAPY
     Route: 042
     Dates: start: 20160223, end: 20160301

REACTIONS (18)
  - Anaemia [Not Recovered/Not Resolved]
  - Cough [Not Recovered/Not Resolved]
  - Decreased appetite [Not Recovered/Not Resolved]
  - Hypotension [Not Recovered/Not Resolved]
  - Product use issue [Unknown]
  - Hyponatraemia [Not Recovered/Not Resolved]
  - Somnolence [Recovered/Resolved]
  - Agitation [Not Recovered/Not Resolved]
  - Blood bilirubin increased [Recovered/Resolved]
  - Respiratory syncytial virus infection [Not Recovered/Not Resolved]
  - Nasal congestion [Not Recovered/Not Resolved]
  - Aspartate aminotransferase increased [Recovered/Resolved]
  - Anxiety [Not Recovered/Not Resolved]
  - Hypokalaemia [Recovered/Resolved]
  - Fatigue [Not Recovered/Not Resolved]
  - Hypomagnesaemia [Recovered/Resolved]
  - Off label use [Unknown]
  - Febrile neutropenia [Not Recovered/Not Resolved]

NARRATIVE: CASE EVENT DATE: 20160112
